FAERS Safety Report 21950756 (Version 1)
Quarter: 2023Q1

REPORT INFORMATION
  Report Type: Spontaneous
  Country: CA (occurrence: None)
  Receive Date: 20230203
  Receipt Date: 20230203
  Transmission Date: 20230418
  Serious: Yes (Life-Threatening, Hospitalization)
  Sender: FDA-Public Use
  Company Number: 2023A027456

PATIENT
  Age: 58 Year
  Sex: Male
  Weight: 67 kg

DRUGS (4)
  1. CRESTOR [Suspect]
     Active Substance: ROSUVASTATIN CALCIUM
     Indication: Dyslipidaemia
     Route: 048
  2. AMLODIPINE [Concomitant]
     Active Substance: AMLODIPINE BESYLATE
  3. INDAPAMIDE [Concomitant]
     Active Substance: INDAPAMIDE
  4. PERINDOPRIL [Concomitant]
     Active Substance: PERINDOPRIL

REACTIONS (3)
  - Acute kidney injury [Recovering/Resolving]
  - Fall [Recovering/Resolving]
  - Rhabdomyolysis [Recovering/Resolving]
